FAERS Safety Report 7950775-X (Version None)
Quarter: 2011Q4

REPORT INFORMATION
  Report Type: 
  Country: None (occurrence: None)
  Receive Date: 20111125
  Receipt Date: 20111109
  Transmission Date: 20120403
  Serious: Yes (Other)
  Sender: FDA-Public Use
  Company Number: 2011SP048243

PATIENT
  Age: 55 Year
  Sex: Female

DRUGS (1)
  1. DR. SCHOLL'S EXTRA THICK CALLUS REMOVERS (40 PCT) [Suspect]
     Indication: DIABETIC FOOT
     Dosage: TOP
     Route: 061

REACTIONS (5)
  - PRODUCT QUALITY ISSUE [None]
  - DRUG ADMINISTRATION ERROR [None]
  - FOOT AMPUTATION [None]
  - INFECTED SKIN ULCER [None]
  - STAPHYLOCOCCAL INFECTION [None]
